FAERS Safety Report 11726853 (Version 3)
Quarter: 2016Q1

REPORT INFORMATION
  Report Type: Spontaneous
  Country: US (occurrence: US)
  Receive Date: 20151112
  Receipt Date: 20160211
  Transmission Date: 20160525
  Serious: Yes (Hospitalization)
  Sender: FDA-Public Use
  Company Number: US-BEH-2015055578

PATIENT
  Age: 71 Year
  Sex: Female
  Weight: 56 kg

DRUGS (32)
  1. ZEMAIRA [Suspect]
     Active Substance: .ALPHA.1-PROTEINASE INHIBITOR HUMAN
     Dosage: 1048 MG/VL
     Route: 042
  2. LEXAPRO [Concomitant]
     Active Substance: ESCITALOPRAM OXALATE
  3. IBUPROFEN. [Concomitant]
     Active Substance: IBUPROFEN
  4. EPIPEN [Concomitant]
     Active Substance: EPINEPHRINE
  5. FLUTICASONE PROPIONATE. [Concomitant]
     Active Substance: FLUTICASONE PROPIONATE
  6. MULTIVITAMINS [Concomitant]
     Active Substance: VITAMINS
  7. SODIUM CHLORIDE. [Concomitant]
     Active Substance: SODIUM CHLORIDE
  8. NORMAL SALINE [Concomitant]
     Active Substance: SODIUM CHLORIDE
  9. CENTRUM SILVER [Concomitant]
     Active Substance: MINERALS\VITAMINS
  10. FOLIC ACID. [Concomitant]
     Active Substance: FOLIC ACID
  11. SPIRIVA [Concomitant]
     Active Substance: TIOTROPIUM BROMIDE MONOHYDRATE
  12. OXYGEN. [Concomitant]
     Active Substance: OXYGEN
  13. PREDNISONE. [Concomitant]
     Active Substance: PREDNISONE
  14. LIDOCAINE/PRILOCAINE [Concomitant]
  15. OMEGA 3 [Concomitant]
     Active Substance: OMEGA-3 FATTY ACIDS
  16. VITAMIN C [Concomitant]
     Active Substance: ASCORBIC ACID
  17. CALCIUM [Concomitant]
     Active Substance: CALCIUM
  18. VALACYCLOVIR [Concomitant]
     Active Substance: VALACYCLOVIR HYDROCHLORIDE
  19. VITAMIN B12 [Concomitant]
     Active Substance: CYANOCOBALAMIN
  20. OXYGEN. [Concomitant]
     Active Substance: OXYGEN
  21. CITRACAL+BONE DENSITY [Concomitant]
  22. ZEMAIRA [Suspect]
     Active Substance: .ALPHA.1-PROTEINASE INHIBITOR HUMAN
     Indication: ALPHA-1 ANTI-TRYPSIN DEFICIENCY
     Dosage: ??-MAY-2013
     Route: 042
  23. CITRACAL PETITES [Concomitant]
     Active Substance: CALCIUM CITRATE
  24. CURCUMIN [Concomitant]
     Active Substance: CURCUMIN
  25. PRESERVISION [Concomitant]
     Active Substance: MINERALS\VITAMINS
  26. PROBIOTIC [Concomitant]
     Active Substance: PROBIOTICS NOS
  27. SEROQUEL [Concomitant]
     Active Substance: QUETIAPINE FUMARATE
  28. AZITHROMYCIN ANHYDROUS. [Concomitant]
     Active Substance: AZITHROMYCIN ANHYDROUS
  29. DIPHENHYDRAMINE. [Concomitant]
     Active Substance: DIPHENHYDRAMINE
  30. ADVAIR HFA [Concomitant]
     Active Substance: FLUTICASONE PROPIONATE\SALMETEROL XINAFOATE
  31. RECLAST [Concomitant]
     Active Substance: ZOLEDRONIC ACID
  32. PENICILLIN [Concomitant]
     Active Substance: PENICILLIN

REACTIONS (4)
  - PCO2 increased [Recovered/Resolved]
  - Dyspnoea [Recovered/Resolved]
  - Chronic obstructive pulmonary disease [Recovered/Resolved]
  - Underdose [Recovered/Resolved]

NARRATIVE: CASE EVENT DATE: 20151010
